APPROVED DRUG PRODUCT: ZIPRASIDONE MESYLATE
Active Ingredient: ZIPRASIDONE MESYLATE
Strength: EQ 20MG BASE/VIAL
Dosage Form/Route: POWDER;INTRAMUSCULAR
Application: A211908 | Product #001 | TE Code: AP
Applicant: GLAND PHARMA LTD
Approved: Dec 26, 2019 | RLD: No | RS: No | Type: RX